FAERS Safety Report 8138117-0 (Version None)
Quarter: 2012Q1

REPORT INFORMATION
  Report Type: 
  Country: None (occurrence: None)
  Receive Date: 20120215
  Receipt Date: 20120215
  Transmission Date: 20120608
  Serious: Yes (Death, Life-Threatening, Hospitalization)
  Sender: FDA-Public Use
  Company Number: None

PATIENT
  Sex: Male
  Weight: 99.79 kg

DRUGS (4)
  1. DABIGATRAN [Concomitant]
     Route: 048
  2. SALSALATE [Concomitant]
     Route: 048
  3. ATORVASTATIN [Concomitant]
     Route: 048
  4. DABIGATRAN [Suspect]
     Indication: ATRIAL FIBRILLATION
     Dosage: 150MG
     Route: 048
     Dates: start: 20110808, end: 20120102

REACTIONS (19)
  - HAEMOGLOBIN DECREASED [None]
  - BRADYCARDIA [None]
  - DIALYSIS [None]
  - HYPOTENSION [None]
  - HAEMORRHAGIC ANAEMIA [None]
  - RIB FRACTURE [None]
  - HAEMATOCRIT DECREASED [None]
  - HAEMOTHORAX [None]
  - CLAVICLE FRACTURE [None]
  - ECCHYMOSIS [None]
  - HEPATIC FAILURE [None]
  - CRANIOCEREBRAL INJURY [None]
  - ACTIVATED PARTIAL THROMBOPLASTIN TIME PROLONGED [None]
  - RENAL FAILURE ACUTE [None]
  - ROAD TRAFFIC ACCIDENT [None]
  - INTERNATIONAL NORMALISED RATIO INCREASED [None]
  - DISSEMINATED INTRAVASCULAR COAGULATION [None]
  - RADIUS FRACTURE [None]
  - METABOLIC ACIDOSIS [None]
